FAERS Safety Report 23454800 (Version 2)
Quarter: 2024Q2

REPORT INFORMATION
  Report Type: Report from Study
  Country: US (occurrence: US)
  Receive Date: 20240130
  Receipt Date: 20240404
  Transmission Date: 20240716
  Serious: No
  Sender: FDA-Public Use
  Company Number: US-ACADIA PHARMACEUTICALS INC.-ACA-2024-PIM-000014

PATIENT
  Sex: Female

DRUGS (7)
  1. NUPLAZID [Suspect]
     Active Substance: PIMAVANSERIN TARTRATE
     Indication: Parkinson^s disease psychosis
     Dosage: 34 MILLIGRAM, QD
     Route: 048
  2. NUPLAZID [Suspect]
     Active Substance: PIMAVANSERIN TARTRATE
     Indication: Parkinson^s disease
     Dosage: 10 MILLIGRAM, QD
     Route: 048
     Dates: start: 20231109
  3. ROPINIROLE [Concomitant]
     Active Substance: ROPINIROLE
  4. DULOXETINE [Concomitant]
     Active Substance: DULOXETINE
  5. CALCIUM [Concomitant]
     Active Substance: CALCIUM
  6. RYTARY [Concomitant]
     Active Substance: CARBIDOPA\LEVODOPA
  7. VITAMIN B [Concomitant]
     Active Substance: VITAMIN B

REACTIONS (2)
  - Product dose omission issue [Recovered/Resolved]
  - Malaise [Unknown]
